FAERS Safety Report 10263239 (Version 1)
Quarter: 2014Q2

REPORT INFORMATION
  Report Type: Spontaneous
  Country: US (occurrence: US)
  Receive Date: 20140626
  Receipt Date: 20140626
  Transmission Date: 20141212
  Serious: No
  Sender: FDA-Public Use
  Company Number: US-ASTRAZENECA-2014SE23422

PATIENT
  Sex: Male

DRUGS (3)
  1. BRILINTA [Suspect]
     Route: 048
  2. WARFARIN [Concomitant]
     Dosage: UNKNOWN UNK
  3. UNKNOWN MEDICATION [Concomitant]
     Dosage: UNKNOWN UNK

REACTIONS (1)
  - Neuropathy peripheral [Unknown]
